FAERS Safety Report 19010537 (Version 1)
Quarter: 2021Q1

REPORT INFORMATION
  Report Type: Spontaneous
  Country: US (occurrence: US)
  Receive Date: 20210316
  Receipt Date: 20210316
  Transmission Date: 20210420
  Serious: No
  Sender: FDA-Public Use
  Company Number: US-SA-2021SA087109

PATIENT
  Sex: Male

DRUGS (1)
  1. DUPIXENT [Suspect]
     Active Substance: DUPILUMAB
     Indication: DERMATITIS ATOPIC
     Route: 058

REACTIONS (6)
  - Skin exfoliation [Unknown]
  - Eczema [Unknown]
  - Skin fissures [Unknown]
  - Skin haemorrhage [Unknown]
  - Dry skin [Unknown]
  - Pruritus [Unknown]
